FAERS Safety Report 17874285 (Version 1)
Quarter: 2020Q2

REPORT INFORMATION
  Report Type: Report from Study
  Country: DE (occurrence: DE)
  Receive Date: 20200609
  Receipt Date: 20200609
  Transmission Date: 20200714
  Serious: Yes (Other)
  Sender: FDA-Public Use
  Company Number: DE-ROCHE-2610100

PATIENT
  Age: 59 Year
  Sex: Female

DRUGS (2)
  1. HERCEPTIN [Suspect]
     Active Substance: TRASTUZUMAB
     Indication: HER2 POSITIVE BREAST CANCER
     Route: 065
  2. PERJETA [Suspect]
     Active Substance: PERTUZUMAB
     Indication: HER2 POSITIVE BREAST CANCER
     Route: 065

REACTIONS (16)
  - Epistaxis [Unknown]
  - Dizziness [Unknown]
  - Skin burning sensation [Unknown]
  - Skin disorder [Unknown]
  - Pneumonia [Unknown]
  - Ageusia [Unknown]
  - Muscle spasms [Unknown]
  - Decreased appetite [Unknown]
  - Dry mouth [Unknown]
  - Ill-defined disorder [Unknown]
  - Fatigue [Unknown]
  - Fluid retention [Unknown]
  - Hypoaesthesia [Unknown]
  - Alopecia [Unknown]
  - Balance disorder [Unknown]
  - Insomnia [Unknown]
